FAERS Safety Report 14137570 (Version 1)
Quarter: 2017Q4

REPORT INFORMATION
  Report Type: Spontaneous
  Country: US (occurrence: US)
  Receive Date: 20171027
  Receipt Date: 20171027
  Transmission Date: 20180321
  Serious: No
  Sender: FDA-Public Use
  Company Number: US-SA-2017SA164498

PATIENT
  Sex: Female

DRUGS (1)
  1. UNISOM SLEEPTABS [Suspect]
     Active Substance: DOXYLAMINE SUCCINATE
     Route: 065

REACTIONS (2)
  - Somnolence [Unknown]
  - Product use issue [Unknown]
